FAERS Safety Report 10589288 (Version 1)
Quarter: 2014Q4

REPORT INFORMATION
  Report Type: Spontaneous
  Country: BR (occurrence: BR)
  Receive Date: 20141118
  Receipt Date: 20141118
  Transmission Date: 20150529
  Serious: Yes (Other)
  Sender: FDA-Public Use
  Company Number: BR-CIPLA LTD.-2014BR01912

PATIENT

DRUGS (6)
  1. TADALAFIL [Suspect]
     Active Substance: TADALAFIL
     Indication: PROSTATOMEGALY
  2. FINASTERIDE. [Suspect]
     Active Substance: FINASTERIDE
     Indication: LOWER URINARY TRACT SYMPTOMS
     Dosage: 5 MG ONCE DAILY  FOR 26 WEEKS
  3. FINASTERIDE. [Suspect]
     Active Substance: FINASTERIDE
     Indication: BENIGN PROSTATIC HYPERPLASIA
  4. FINASTERIDE. [Suspect]
     Active Substance: FINASTERIDE
     Indication: PROSTATOMEGALY
  5. TADALAFIL [Suspect]
     Active Substance: TADALAFIL
     Indication: LOWER URINARY TRACT SYMPTOMS
     Dosage: 5 MG ONCE DAILY FOR 26 WEEKS
  6. TADALAFIL [Suspect]
     Active Substance: TADALAFIL
     Indication: BENIGN PROSTATIC HYPERPLASIA

REACTIONS (1)
  - Peyronie^s disease [Unknown]
